FAERS Safety Report 4762904-X (Version None)
Quarter: 2005Q3

REPORT INFORMATION
  Report Type: 
  Country: None (occurrence: None)
  Receive Date: 20050907
  Receipt Date: 20050831
  Transmission Date: 20060218
  Serious: Yes (Other)
  Sender: FDA-Public Use
  Company Number: PHBS2005IT12919

PATIENT
  Age: 58 Year
  Sex: Male

DRUGS (4)
  1. ZOMETA [Suspect]
     Indication: MULTIPLE MYELOMA
     Dosage: 4 MG, QMO
     Route: 042
     Dates: start: 20030101
  2. VINCRISTINE [Concomitant]
     Route: 065
  3. DEXAMETHASONE [Concomitant]
     Route: 065
  4. IMMUNOGLOBULIN G HUMAN [Concomitant]
     Route: 065

REACTIONS (4)
  - ASEPTIC NECROSIS BONE [None]
  - FISTULA [None]
  - OSTEONECROSIS [None]
  - WOUND DEBRIDEMENT [None]
